FAERS Safety Report 5559851-2 (Version None)
Quarter: 2007Q4

REPORT INFORMATION
  Report Type: 
  Country: None (occurrence: None)
  Receive Date: 20071214
  Receipt Date: 20071016
  Transmission Date: 20080405
  Serious: Yes (Death)
  Sender: FDA-Public Use
  Company Number: US-ABBOTT-07P-163-0421002-00

PATIENT
  Sex: Female
  Weight: 35.412 kg

DRUGS (3)
  1. HUMIRA [Suspect]
     Indication: RHEUMATOID ARTHRITIS
  2. METHOTREXATE [Concomitant]
     Indication: RHEUMATOID ARTHRITIS
  3. CELECOXIB [Concomitant]
     Indication: RHEUMATOID ARTHRITIS

REACTIONS (1)
  - PNEUMONIA [None]
